FAERS Safety Report 26122162 (Version 1)
Quarter: 2025Q4

REPORT INFORMATION
  Report Type: Spontaneous
  Country: US (occurrence: US)
  Receive Date: 20251204
  Receipt Date: 20251204
  Transmission Date: 20260117
  Serious: Yes (Other)
  Sender: PFIZER
  Company Number: US-PFIZER INC-202500235636

PATIENT
  Age: 63 Year
  Sex: Female

DRUGS (1)
  1. XELJANZ XR [Suspect]
     Active Substance: TOFACITINIB CITRATE
     Indication: Psoriatic arthropathy
     Dosage: 1 TABLET DAILY

REACTIONS (4)
  - Intracranial aneurysm [Not Recovered/Not Resolved]
  - Ruptured cerebral aneurysm [Unknown]
  - Haemorrhagic stroke [Unknown]
  - Tendon rupture [Not Recovered/Not Resolved]
